FAERS Safety Report 9893460 (Version 2)
Quarter: 2014Q1

REPORT INFORMATION
  Report Type: Spontaneous
  Country: US (occurrence: US)
  Receive Date: 20140213
  Receipt Date: 20140312
  Transmission Date: 20141002
  Serious: Yes (Other)
  Sender: FDA-Public Use
  Company Number: US-FRI-1000054044

PATIENT
  Age: 69 Year
  Sex: Male

DRUGS (9)
  1. LINZESS [Suspect]
     Indication: IRRITABLE BOWEL SYNDROME
     Dosage: 290MCG
     Route: 048
     Dates: start: 20140203, end: 20140205
  2. GLIMEPIRIDE [Concomitant]
     Indication: DIABETES MELLITUS
     Dosage: DAILY
  3. LEXAPRO [Concomitant]
     Indication: DEPRESSION
     Dosage: 30MG
  4. TAMSULOSIN [Concomitant]
     Indication: BENIGN PROSTATIC HYPERPLASIA
     Dosage: 0.8MG
  5. TRAMADOL [Concomitant]
     Indication: ARTHRITIS
     Dosage: 50MG
  6. PRAVASTATIN [Concomitant]
     Indication: BLOOD CHOLESTEROL INCREASED
     Dosage: DAILY
  7. ZYRTEC [Concomitant]
     Indication: SEASONAL ALLERGY
     Dosage: DAILY
  8. MELOXICAM [Concomitant]
     Indication: ARTHRITIS
     Dosage: 15MG
  9. BACTRIM [Concomitant]
     Indication: SINUSITIS
     Dosage: DAILY
     Dates: start: 20140203

REACTIONS (5)
  - Blood glucose increased [Recovered/Resolved]
  - Diarrhoea [Recovered/Resolved]
  - Vision blurred [Recovered/Resolved]
  - Nausea [Recovered/Resolved]
  - Dizziness [Recovered/Resolved]
